FAERS Safety Report 5760164-4 (Version None)
Quarter: 2008Q2

REPORT INFORMATION
  Report Type: 
  Country: None (occurrence: None)
  Receive Date: 20080605
  Receipt Date: 20080528
  Transmission Date: 20081010
  Serious: Yes (Other)
  Sender: FDA-Public Use
  Company Number: FR-BOEHRINGER INGELHEIM GMBH, GERMANY-2008-FF-00410FF

PATIENT
  Age: 86 Year
  Sex: Female

DRUGS (3)
  1. SPIRIVA [Suspect]
     Route: 055
  2. ZOXAN [Suspect]
  3. LOXEN [Suspect]

REACTIONS (3)
  - COUGH [None]
  - DRUG DISPENSING ERROR [None]
  - DYSPNOEA [None]
